FAERS Safety Report 7898673-4 (Version None)
Quarter: 2011Q4

REPORT INFORMATION
  Report Type: 
  Country: None (occurrence: None)
  Receive Date: 20111107
  Receipt Date: 20111031
  Transmission Date: 20120403
  Serious: Yes (Other)
  Sender: FDA-Public Use
  Company Number: US-SANOFI-AVENTIS-2011SA072100

PATIENT
  Sex: Female

DRUGS (7)
  1. FOLIC ACID [Concomitant]
  2. ARAVA [Suspect]
     Indication: RHEUMATOID ARTHRITIS
     Dates: start: 20070101
  3. CALCIUM/COLECALCIFEROL [Concomitant]
     Indication: RHEUMATOID ARTHRITIS
     Dates: start: 20020101
  4. PRAVASTATIN SODIUM [Concomitant]
  5. METHOTREXATE SODIUM [Concomitant]
     Indication: RHEUMATOID ARTHRITIS
     Dates: start: 20020101
  6. NABUMETONE [Concomitant]
  7. HUMIRA [Suspect]
     Route: 058
     Dates: start: 20030101

REACTIONS (4)
  - MYELITIS TRANSVERSE [None]
  - DRY MOUTH [None]
  - ARTHRALGIA [None]
  - DRY EYE [None]
